FAERS Safety Report 4694305-7 (Version None)
Quarter: 2005Q2

REPORT INFORMATION
  Report Type: 
  Country: None (occurrence: None)
  Receive Date: 20050620
  Receipt Date: 20050606
  Transmission Date: 20051028
  Serious: Yes (Hospitalization)
  Sender: FDA-Public Use
  Company Number: FR-JNJFOC-20050601557

PATIENT
  Age: 36 Year
  Sex: Female
  Weight: 54 kg

DRUGS (7)
  1. REMICADE [Suspect]
     Dosage: 12TH INFUSION
     Route: 042
  2. REMICADE [Suspect]
     Dosage: 11TH INFUSION
     Route: 042
  3. REMICADE [Suspect]
     Indication: RHEUMATOID ARTHRITIS
     Route: 042
  4. ARAVA [Suspect]
     Indication: RHEUMATOID ARTHRITIS
     Route: 049
  5. CORTANCYL [Concomitant]
     Indication: RHEUMATOID ARTHRITIS
     Route: 049
  6. FOSAMAX [Concomitant]
     Indication: RHEUMATOID ARTHRITIS
     Route: 049
  7. OROCAL [Concomitant]
     Indication: RHEUMATOID ARTHRITIS
     Route: 049

REACTIONS (2)
  - CORNEAL ULCER [None]
  - PSEUDOMONAS INFECTION [None]
